FAERS Safety Report 10642469 (Version 1)
Quarter: 2014Q4

REPORT INFORMATION
  Report Type: Spontaneous
  Country: US (occurrence: None)
  Receive Date: 20141208
  Receipt Date: 20141208
  Transmission Date: 20150529
  Serious: Yes (Disabling)
  Sender: FDA-Public Use
  Company Number: None

PATIENT
  Age: 45 Year
  Sex: Female

DRUGS (1)
  1. CIPROFLOXACIN HCL 250 MG TAB 250 MG DR. REDD^S LAB [Suspect]
     Active Substance: CIPROFLOXACIN HYDROCHLORIDE
     Indication: URINARY TRACT INFECTION
     Dosage: 6 PILLS, TWICE DAILY, TAKEN BY MOUTH
     Route: 048
     Dates: start: 20141201, end: 20141202

REACTIONS (4)
  - Paraesthesia [None]
  - Joint range of motion decreased [None]
  - Arthralgia [None]
  - Burning sensation [None]

NARRATIVE: CASE EVENT DATE: 20141201
